FAERS Safety Report 25484839 (Version 1)
Quarter: 2025Q2

REPORT INFORMATION
  Report Type: Spontaneous
  Country: FR (occurrence: FR)
  Receive Date: 20250626
  Receipt Date: 20250626
  Transmission Date: 20250716
  Serious: Yes (Other)
  Sender: MYLAN
  Company Number: FR-LMS-2025000722

PATIENT
  Sex: Male

DRUGS (52)
  1. VENLAFAXINE [Interacting]
     Active Substance: VENLAFAXINE HYDROCHLORIDE
     Indication: Product used for unknown indication
  2. VENLAFAXINE [Interacting]
     Active Substance: VENLAFAXINE HYDROCHLORIDE
     Route: 065
  3. VENLAFAXINE [Interacting]
     Active Substance: VENLAFAXINE HYDROCHLORIDE
     Route: 065
  4. VENLAFAXINE [Interacting]
     Active Substance: VENLAFAXINE HYDROCHLORIDE
  5. TAMSULOSIN [Interacting]
     Active Substance: TAMSULOSIN
     Indication: Product used for unknown indication
  6. TAMSULOSIN [Interacting]
     Active Substance: TAMSULOSIN
     Route: 065
  7. TAMSULOSIN [Interacting]
     Active Substance: TAMSULOSIN
     Route: 065
  8. TAMSULOSIN [Interacting]
     Active Substance: TAMSULOSIN
  9. AMIODARONE [Interacting]
     Active Substance: AMIODARONE
     Indication: Product used for unknown indication
  10. AMIODARONE [Interacting]
     Active Substance: AMIODARONE
     Route: 065
  11. AMIODARONE [Interacting]
     Active Substance: AMIODARONE
     Route: 065
  12. AMIODARONE [Interacting]
     Active Substance: AMIODARONE
  13. EZETIMIBE [Interacting]
     Active Substance: EZETIMIBE
     Indication: Product used for unknown indication
  14. EZETIMIBE [Interacting]
     Active Substance: EZETIMIBE
     Route: 065
  15. EZETIMIBE [Interacting]
     Active Substance: EZETIMIBE
     Route: 065
  16. EZETIMIBE [Interacting]
     Active Substance: EZETIMIBE
  17. CHOLECALCIFEROL [Interacting]
     Active Substance: CHOLECALCIFEROL
     Indication: Product used for unknown indication
  18. CHOLECALCIFEROL [Interacting]
     Active Substance: CHOLECALCIFEROL
     Route: 065
  19. CHOLECALCIFEROL [Interacting]
     Active Substance: CHOLECALCIFEROL
     Route: 065
  20. CHOLECALCIFEROL [Interacting]
     Active Substance: CHOLECALCIFEROL
  21. PANTOPRAZOLE [Interacting]
     Active Substance: PANTOPRAZOLE
     Indication: Product used for unknown indication
  22. PANTOPRAZOLE [Interacting]
     Active Substance: PANTOPRAZOLE
     Route: 065
  23. PANTOPRAZOLE [Interacting]
     Active Substance: PANTOPRAZOLE
     Route: 065
  24. PANTOPRAZOLE [Interacting]
     Active Substance: PANTOPRAZOLE
  25. ALPRAZOLAM [Interacting]
     Active Substance: ALPRAZOLAM
     Indication: Product used for unknown indication
  26. ALPRAZOLAM [Interacting]
     Active Substance: ALPRAZOLAM
     Route: 065
  27. ALPRAZOLAM [Interacting]
     Active Substance: ALPRAZOLAM
     Route: 065
  28. ALPRAZOLAM [Interacting]
     Active Substance: ALPRAZOLAM
  29. BISOPROLOL [Interacting]
     Active Substance: BISOPROLOL
     Indication: Product used for unknown indication
  30. BISOPROLOL [Interacting]
     Active Substance: BISOPROLOL
     Route: 065
  31. BISOPROLOL [Interacting]
     Active Substance: BISOPROLOL
     Route: 065
  32. BISOPROLOL [Interacting]
     Active Substance: BISOPROLOL
  33. CALCIUM\CHOLECALCIFEROL [Interacting]
     Active Substance: CALCIUM\CHOLECALCIFEROL
     Indication: Product used for unknown indication
  34. CALCIUM\CHOLECALCIFEROL [Interacting]
     Active Substance: CALCIUM\CHOLECALCIFEROL
     Route: 065
  35. CALCIUM\CHOLECALCIFEROL [Interacting]
     Active Substance: CALCIUM\CHOLECALCIFEROL
     Route: 065
  36. CALCIUM\CHOLECALCIFEROL [Interacting]
     Active Substance: CALCIUM\CHOLECALCIFEROL
  37. ORGOVYX [Interacting]
     Active Substance: RELUGOLIX
     Indication: Product used for unknown indication
  38. ORGOVYX [Interacting]
     Active Substance: RELUGOLIX
     Route: 065
  39. ORGOVYX [Interacting]
     Active Substance: RELUGOLIX
     Route: 065
  40. ORGOVYX [Interacting]
     Active Substance: RELUGOLIX
  41. PULMICORT TURBUHALER [Interacting]
     Active Substance: BUDESONIDE
     Indication: Product used for unknown indication
  42. PULMICORT TURBUHALER [Interacting]
     Active Substance: BUDESONIDE
     Route: 065
  43. PULMICORT TURBUHALER [Interacting]
     Active Substance: BUDESONIDE
     Route: 065
  44. PULMICORT TURBUHALER [Interacting]
     Active Substance: BUDESONIDE
  45. DAPAGLIFLOZIN [Interacting]
     Active Substance: DAPAGLIFLOZIN
     Indication: Product used for unknown indication
  46. DAPAGLIFLOZIN [Interacting]
     Active Substance: DAPAGLIFLOZIN
     Route: 065
  47. DAPAGLIFLOZIN [Interacting]
     Active Substance: DAPAGLIFLOZIN
     Route: 065
  48. DAPAGLIFLOZIN [Interacting]
     Active Substance: DAPAGLIFLOZIN
  49. ELIQUIS [Interacting]
     Active Substance: APIXABAN
     Indication: Product used for unknown indication
  50. ELIQUIS [Interacting]
     Active Substance: APIXABAN
     Route: 065
  51. ELIQUIS [Interacting]
     Active Substance: APIXABAN
     Route: 065
  52. ELIQUIS [Interacting]
     Active Substance: APIXABAN

REACTIONS (2)
  - Hyperkalaemia [Unknown]
  - Drug interaction [Unknown]

NARRATIVE: CASE EVENT DATE: 20250501
